FAERS Safety Report 24122628 (Version 2)
Quarter: 2025Q2

REPORT INFORMATION
  Report Type: Spontaneous
  Country: CN (occurrence: CN)
  Receive Date: 20240723
  Receipt Date: 20250608
  Transmission Date: 20250717
  Serious: Yes (Life-Threatening)
  Sender: COHERUS
  Company Number: CN-SHANGHAI JUNSHI BIOSCIENCES CO., LTD.-CN2024010663

PATIENT

DRUGS (2)
  1. TORIPALIMAB [Suspect]
     Active Substance: TORIPALIMAB
     Indication: Malignant melanoma
     Route: 041
     Dates: start: 20240521, end: 20240521
  2. SODIUM CHLORIDE [Concomitant]
     Active Substance: SODIUM CHLORIDE
     Indication: Medication dilution
     Route: 041
     Dates: start: 20240521

REACTIONS (2)
  - Myelosuppression [Recovered/Resolved]
  - Off label use [Unknown]

NARRATIVE: CASE EVENT DATE: 20240711
